FAERS Safety Report 8825055 (Version 1)
Quarter: 2012Q4

REPORT INFORMATION
  Report Type: 
  Country: US (occurrence: US)
  Receive Date: 20121004
  Receipt Date: 20121004
  Transmission Date: 20130627
  Serious: Yes (Hospitalization, Other)
  Sender: FDA-Public Use
  Company Number: US-JNJFOC-20120911723

PATIENT
  Age: 68 Year
  Sex: Female
  Weight: 73.48 kg

DRUGS (3)
  1. BENADRYL [Suspect]
     Indication: DRUG HYPERSENSITIVITY
     Route: 048
     Dates: start: 1992
  2. ASPIRIN [Concomitant]
     Indication: ANTICOAGULANT THERAPY
     Route: 065
  3. FOLIC ACID [Concomitant]
     Indication: BLOOD COUNT
     Route: 065

REACTIONS (4)
  - Heart rate increased [Unknown]
  - Drug hypersensitivity [Unknown]
  - Off label use [Unknown]
  - Product formulation issue [None]
